FAERS Safety Report 16664972 (Version 5)
Quarter: 2024Q2

REPORT INFORMATION
  Report Type: Report from Study
  Country: IT (occurrence: IT)
  Receive Date: 20190803
  Receipt Date: 20240404
  Transmission Date: 20240716
  Serious: Yes (Other)
  Sender: FDA-Public Use
  Company Number: None

PATIENT
  Age: 73 Year
  Sex: Male

DRUGS (12)
  1. DOCETAXEL [Suspect]
     Active Substance: DOCETAXEL\DOCETAXEL ANHYDROUS
     Indication: Mixed adenoneuroendocrine carcinoma
     Dosage: 4 UNK, CYCLICAL (8 CYCLES)
     Route: 065
     Dates: start: 2018
  2. DOCETAXEL [Suspect]
     Active Substance: DOCETAXEL\DOCETAXEL ANHYDROUS
     Indication: Adenocarcinoma gastric
  3. IRINOTECAN [Suspect]
     Active Substance: IRINOTECAN
     Indication: Adenocarcinoma gastric
     Dosage: UNK, 4 CYCLES, (8 CYCLES)
     Route: 065
     Dates: start: 2018, end: 2018
  4. IRINOTECAN [Suspect]
     Active Substance: IRINOTECAN
     Indication: Mixed adenoneuroendocrine carcinoma
  5. OXALIPLATIN [Suspect]
     Active Substance: OXALIPLATIN
     Indication: Adenocarcinoma gastric
     Dosage: 4 UNK, CYCLICAL (8 CYCLES)
     Route: 065
     Dates: start: 2018
  6. OXALIPLATIN [Suspect]
     Active Substance: OXALIPLATIN
     Indication: Mixed adenoneuroendocrine carcinoma
  7. FLUOROURACIL [Suspect]
     Active Substance: FLUOROURACIL
     Indication: Adenocarcinoma gastric
     Dosage: UNK, CYCLIC (8 CYCLES)
     Route: 065
  8. FLUOROURACIL [Suspect]
     Active Substance: FLUOROURACIL
     Indication: Mixed adenoneuroendocrine carcinoma
  9. LEUCOVORIN [Suspect]
     Active Substance: LEUCOVORIN\LEUCOVORIN CALCIUM
     Indication: Mixed adenoneuroendocrine carcinoma
     Dosage: 4 UNK, CYCLICAL (8 CYCLES)
     Route: 065
     Dates: start: 2018
  10. LEUCOVORIN [Suspect]
     Active Substance: LEUCOVORIN\LEUCOVORIN CALCIUM
     Indication: Adenocarcinoma gastric
  11. LEUCOVORIN [Suspect]
     Active Substance: LEUCOVORIN\LEUCOVORIN CALCIUM
     Indication: Adenocarcinoma gastric
     Dosage: UNK UNK, CYCLICAL (8 CYCLES)
     Route: 065
  12. LEUCOVORIN [Suspect]
     Active Substance: LEUCOVORIN\LEUCOVORIN CALCIUM
     Indication: Mixed adenoneuroendocrine carcinoma

REACTIONS (5)
  - Erosive oesophagitis [Unknown]
  - Transdifferentiation of neoplasm [Recovered/Resolved]
  - Diarrhoea [Recovered/Resolved]
  - Fatigue [Recovered/Resolved]
  - Product use in unapproved indication [Unknown]

NARRATIVE: CASE EVENT DATE: 20181001
